FAERS Safety Report 16188524 (Version 2)
Quarter: 2019Q2

REPORT INFORMATION
  Report Type: Spontaneous
  Country: CN (occurrence: CN)
  Receive Date: 20190412
  Receipt Date: 20190413
  Transmission Date: 20190711
  Serious: Yes (Life-Threatening, Other)
  Sender: FDA-Public Use
  Company Number: PHHY2019CN083631

PATIENT
  Age: 72 Year
  Sex: Female

DRUGS (1)
  1. FEMARA [Suspect]
     Active Substance: LETROZOLE
     Indication: BREAST CANCER
     Dosage: UNK
     Route: 048

REACTIONS (8)
  - Myocardial ischaemia [Recovered/Resolved]
  - Palpitations [Unknown]
  - Tremor [Unknown]
  - Back pain [Unknown]
  - Cardiac discomfort [Unknown]
  - Feeling abnormal [Unknown]
  - Tachycardia [Recovered/Resolved]
  - Product packaging issue [Unknown]
